FAERS Safety Report 17588247 (Version 2)
Quarter: 2020Q2

REPORT INFORMATION
  Report Type: Spontaneous
  Country: US (occurrence: US)
  Receive Date: 20200326
  Receipt Date: 20200410
  Transmission Date: 20200713
  Serious: Yes (Other)
  Sender: FDA-Public Use
  Company Number: US-BAUSCH-BL-2020-008200

PATIENT
  Age: 31 Year
  Sex: Female

DRUGS (14)
  1. METRONIDAZOLE. [Suspect]
     Active Substance: METRONIDAZOLE
     Indication: VULVOVAGINITIS TRICHOMONAL
     Dosage: HIGH DOSE, BOLUS
     Route: 048
  2. METRONIDAZOLE. [Suspect]
     Active Substance: METRONIDAZOLE
     Route: 048
  3. DOXYCYCLINE. [Suspect]
     Active Substance: DOXYCYCLINE
     Indication: VULVOVAGINITIS TRICHOMONAL
     Route: 048
  4. TINIDAZOLE. [Suspect]
     Active Substance: TINIDAZOLE
     Indication: VULVOVAGINITIS TRICHOMONAL
     Route: 065
  5. TINIDAZOLE. [Suspect]
     Active Substance: TINIDAZOLE
     Route: 065
  6. SALINE [Suspect]
     Active Substance: SODIUM CHLORIDE
     Indication: VULVOVAGINITIS TRICHOMONAL
     Dosage: DOUCHES, NIGHTLY
     Route: 065
     Dates: start: 1988, end: 1988
  7. METRONIDAZOLE. [Suspect]
     Active Substance: METRONIDAZOLE
     Route: 048
  8. METRONIDAZOLE. [Suspect]
     Active Substance: METRONIDAZOLE
     Route: 048
     Dates: start: 1988, end: 1988
  9. METRONIDAZOLE. [Suspect]
     Active Substance: METRONIDAZOLE
     Route: 048
     Dates: start: 1988, end: 1988
  10. SULFONAMIDE [Suspect]
     Active Substance: UNSPECIFIED INGREDIENT
     Indication: VULVOVAGINITIS TRICHOMONAL
     Dosage: INTRAVAGINAL
     Route: 050
  11. ERYTHROMYCIN. [Suspect]
     Active Substance: ERYTHROMYCIN
     Indication: VULVOVAGINITIS TRICHOMONAL
     Route: 048
  12. METRONIDAZOLE. [Suspect]
     Active Substance: METRONIDAZOLE
     Dosage: IN THE FORM OF A NONCOATED ORAL TABLET; INTRA-VAGINALLY
     Route: 050
     Dates: start: 1988, end: 1988
  13. METRONIDAZOLE. [Suspect]
     Active Substance: METRONIDAZOLE
     Dosage: 1 G INTRAVAGINALLY TWICE DAILY
     Route: 050
     Dates: start: 1988, end: 1988
  14. PROMETHAZINE [Concomitant]
     Active Substance: PROMETHAZINE HYDROCHLORIDE
     Indication: NAUSEA
     Dates: start: 1988

REACTIONS (1)
  - Treatment failure [Unknown]
